FAERS Safety Report 8042579-7 (Version None)
Quarter: 2012Q1

REPORT INFORMATION
  Report Type: 
  Country: None (occurrence: None)
  Receive Date: 20120112
  Receipt Date: 20120104
  Transmission Date: 20120608
  Serious: Yes (Hospitalization)
  Sender: FDA-Public Use
  Company Number: FR-SANOFI-AVENTIS-2011SA055515

PATIENT
  Age: 46 Year
  Sex: Female

DRUGS (2)
  1. LASIX [Suspect]
     Route: 042
     Dates: start: 20110214
  2. RELENZA [Suspect]
     Route: 042
     Dates: start: 20110217, end: 20110220

REACTIONS (2)
  - HYPOTENSION [None]
  - BRADYCARDIA [None]
